FAERS Safety Report 21445958 (Version 1)
Quarter: 2022Q4

REPORT INFORMATION
  Report Type: Spontaneous
  Country: US (occurrence: None)
  Receive Date: 20221011
  Receipt Date: 20221011
  Transmission Date: 20230113
  Serious: Yes (Death)
  Sender: FDA-Public Use
  Company Number: None

PATIENT
  Age: 78 Year
  Sex: Male
  Weight: 69.03 kg

DRUGS (10)
  1. REVLIMID [Suspect]
     Active Substance: LENALIDOMIDE
     Indication: Plasma cell myeloma
     Dosage: FREQUENCY : DAILY;?
     Route: 048
     Dates: start: 20201125
  2. ACYCLOVIR [Concomitant]
     Active Substance: ACYCLOVIR
  3. folic acid 1 mg [Concomitant]
  4. k-tab 10 meq [Concomitant]
  5. centrum multi vitamin [Concomitant]
  6. VERAPAMIL [Concomitant]
     Active Substance: VERAPAMIL HYDROCHLORIDE
  7. vitamin D3 50mcg [Concomitant]
  8. XARELTO [Concomitant]
     Active Substance: RIVAROXABAN
  9. EPCLUSA [Concomitant]
     Active Substance: SOFOSBUVIR\VELPATASVIR
  10. BUMETANIDE [Concomitant]
     Active Substance: BUMETANIDE

REACTIONS (1)
  - Death [None]

NARRATIVE: CASE EVENT DATE: 20221006
